FAERS Safety Report 6241116-7 (Version None)
Quarter: 2009Q2

REPORT INFORMATION
  Report Type: 
  Country: None (occurrence: None)
  Receive Date: 20090619
  Receipt Date: 20090619
  Transmission Date: 20091009
  Serious: No
  Sender: FDA-Public Use
  Company Number: None

PATIENT
  Age: 36 Year
  Sex: Female
  Weight: 135.1719 kg

DRUGS (1)
  1. LUPRON DEPOT [Suspect]
     Indication: ENDOMETRIOSIS
     Dosage: 6 MONTHS IN 2002

REACTIONS (15)
  - AMNESIA [None]
  - BACK PAIN [None]
  - BONE PAIN [None]
  - CHEST PAIN [None]
  - FIBROMYALGIA [None]
  - FRACTURE [None]
  - HYPERTENSION [None]
  - IMPAIRED WORK ABILITY [None]
  - INFLUENZA [None]
  - INJURY [None]
  - INSOMNIA [None]
  - NERVOUS SYSTEM DISORDER [None]
  - OSTEOPENIA [None]
  - PAIN [None]
  - PAIN IN EXTREMITY [None]
